FAERS Safety Report 16929890 (Version 7)
Quarter: 2020Q3

REPORT INFORMATION
  Report Type: Report from Study
  Country: JP (occurrence: JP)
  Receive Date: 20191017
  Receipt Date: 20200707
  Transmission Date: 20201102
  Serious: Yes (Life-Threatening, Hospitalization)
  Sender: FDA-Public Use
  Company Number: JP-ROCHE-2436436

PATIENT
  Age: 69 Year
  Sex: Male
  Weight: 60.9 kg

DRUGS (6)
  1. LOXOPROFEN [Concomitant]
     Active Substance: LOXOPROFEN
     Indication: CANCER PAIN
     Dosage: SINGLE USE
     Route: 048
     Dates: start: 20190920
  2. ALIMTA [Suspect]
     Active Substance: PEMETREXED DISODIUM
     Indication: LUNG NEOPLASM MALIGNANT
     Dosage: LAST DOSE ON 08/JAN/2020
     Route: 041
     Dates: start: 20190919
  3. AZUNOL GARGLE LIQUID [Concomitant]
     Indication: STOMATITIS
     Dosage: DOSAGE: PROPER QUANTITY AND DOSE INTERVAL: 2?3 TIMES A DAY AND ADMINISTRATION ?PERIODS: INVESTIGATIO
     Route: 049
  4. ATEZOLIZUMAB. [Suspect]
     Active Substance: ATEZOLIZUMAB
     Indication: LUNG NEOPLASM MALIGNANT
     Dosage: LAST DOSE ON 08/JAN/2020
     Route: 041
     Dates: start: 20190919
  5. CARBOPLATIN. [Suspect]
     Active Substance: CARBOPLATIN
     Indication: LUNG NEOPLASM MALIGNANT
     Route: 041
     Dates: start: 20190919
  6. FRESMIN S [HYDROXOCOBALAMIN] [Concomitant]
     Indication: PROPHYLAXIS
     Route: 030
     Dates: start: 20190904

REACTIONS (3)
  - Pyrexia [Recovered/Resolved]
  - Pneumonitis [Recovered/Resolved]
  - Toxic skin eruption [Recovered/Resolved]

NARRATIVE: CASE EVENT DATE: 20190924
